FAERS Safety Report 7737275-7 (Version None)
Quarter: 2011Q3

REPORT INFORMATION
  Report Type: 
  Country: None (occurrence: None)
  Receive Date: 20110902
  Receipt Date: 20110822
  Transmission Date: 20111222
  Serious: Yes (Life-Threatening, Disabling)
  Sender: FDA-Public Use
  Company Number: TUK2011A00120

PATIENT
  Age: 73 Year
  Sex: Female

DRUGS (5)
  1. ACTOS [Suspect]
     Indication: DIABETES MELLITUS
     Dosage: 30 MG (30 MG,1 IN 1 D) ORAL
     Route: 048
     Dates: start: 20100401, end: 20110701
  2. BENDROFLUMETHIAZIDE (BENDROFLUMETHIAZIDE) [Concomitant]
  3. SIMVASTATIN [Concomitant]
  4. BETAHISTINE(BETAHISTINE) [Concomitant]
  5. LISINOPRIL [Concomitant]

REACTIONS (1)
  - BLADDER ADENOCARCINOMA STAGE UNSPECIFIED [None]
